FAERS Safety Report 4661366-0 (Version None)
Quarter: 2005Q2

REPORT INFORMATION
  Report Type: 
  Country: None (occurrence: None)
  Receive Date: 20050512
  Receipt Date: 20050429
  Transmission Date: 20051028
  Serious: Yes (Other)
  Sender: FDA-Public Use
  Company Number: 05-05-0802

PATIENT
  Sex: Female

DRUGS (3)
  1. BACLOFEN [Suspect]
     Indication: CEREBRAL PALSY
  2. BACLOFEN [Suspect]
  3. DANTROLENE [Concomitant]

REACTIONS (3)
  - HALLUCINATION [None]
  - MUSCLE SPASMS [None]
  - PARANOIA [None]
